FAERS Safety Report 7618801-5 (Version None)
Quarter: 2011Q3

REPORT INFORMATION
  Report Type: 
  Country: None (occurrence: None)
  Receive Date: 20110718
  Receipt Date: 20110708
  Transmission Date: 20111222
  Serious: Yes (Disabling, Other)
  Sender: FDA-Public Use
  Company Number: US-BAYER-201041585NA

PATIENT
  Sex: Female
  Weight: 78.7 kg

DRUGS (25)
  1. GADOLINIUM IN UNSPECIFIED DRUG [Suspect]
     Dates: start: 20080225, end: 20080225
  2. VENOFER [Concomitant]
  3. ARANESP [Concomitant]
  4. ATENOLOL [Concomitant]
  5. PROHANCE [Suspect]
  6. MAGNEVIST [Suspect]
     Indication: IMAGING PROCEDURE
  7. GADOLINIUM IN UNSPECIFIED DRUG [Suspect]
     Dates: start: 20040517, end: 20040517
  8. GADOLINIUM IN UNSPECIFIED DRUG [Suspect]
     Dates: start: 20050525, end: 20050525
  9. GADOLINIUM IN UNSPECIFIED DRUG [Suspect]
     Dates: start: 20080604, end: 20080604
  10. EPOGEN [Concomitant]
  11. RENAGEL [Concomitant]
  12. COUMADIN [Concomitant]
  13. GADOLINIUM IN UNSPECIFIED DRUG [Suspect]
     Dates: start: 20040604, end: 20040604
  14. MULTIHANCE [Suspect]
     Indication: IMAGING PROCEDURE
  15. GADOLINIUM IN UNSPECIFIED DRUG [Suspect]
     Dates: start: 20040716, end: 20040716
  16. CLONIDINE [Concomitant]
  17. NORVASC [Concomitant]
  18. METOPROLOL TARTRATE [Concomitant]
  19. RENVELA [Concomitant]
  20. GADOLINIUM IN UNSPECIFIED DRUG [Suspect]
     Indication: NUCLEAR MAGNETIC RESONANCE IMAGING
     Dates: start: 20020824, end: 20020824
  21. OPTIMARK [Suspect]
     Indication: IMAGING PROCEDURE
  22. ENALAPRIL MALEATE [Concomitant]
  23. ALTACE [Concomitant]
  24. OMNISCAN [Suspect]
     Indication: IMAGING PROCEDURE
  25. PROHANCE [Suspect]
     Indication: IMAGING PROCEDURE

REACTIONS (10)
  - FIBROSIS [None]
  - ANXIETY [None]
  - EMOTIONAL DISTRESS [None]
  - PAIN [None]
  - SKIN TIGHTNESS [None]
  - SKIN DISCOLOURATION [None]
  - PHYSICAL DISABILITY [None]
  - NEPHROGENIC SYSTEMIC FIBROSIS [None]
  - DEFORMITY [None]
  - SKIN INDURATION [None]
